FAERS Safety Report 9852006 (Version 2)
Quarter: 2014Q2

REPORT INFORMATION
  Report Type: Report from Study
  Country: CA (occurrence: CA)
  Receive Date: 20140129
  Receipt Date: 20140407
  Transmission Date: 20141212
  Serious: No
  Sender: FDA-Public Use
  Company Number: CA-JNJFOC-20140112416

PATIENT
  Sex: Male
  Weight: 131.5 kg

DRUGS (8)
  1. STELARA [Suspect]
     Indication: PSORIASIS
     Route: 058
  2. STELARA [Suspect]
     Indication: PSORIASIS
     Route: 058
     Dates: start: 20130224, end: 201309
  3. VICTOZA [Concomitant]
     Route: 048
  4. METFORMIN [Concomitant]
     Route: 048
  5. RAMIPRIL [Concomitant]
     Route: 048
  6. HCTZ [Concomitant]
     Route: 048
  7. LANTUS [Concomitant]
     Route: 058
  8. NOVORAPID [Concomitant]
     Route: 058

REACTIONS (1)
  - Liver function test abnormal [Unknown]
